FAERS Safety Report 6521878-1 (Version None)
Quarter: 2009Q4

REPORT INFORMATION
  Report Type: 
  Country: None (occurrence: None)
  Receive Date: 20091230
  Receipt Date: 20091218
  Transmission Date: 20100525
  Serious: Yes (Other)
  Sender: FDA-Public Use
  Company Number: US-BAYER-200943346NA

PATIENT
  Sex: Male

DRUGS (2)
  1. TRASYLOL [Suspect]
     Indication: CARDIAC OPERATION
     Route: 042
     Dates: start: 20011201
  2. TRASYLOL [Suspect]
     Route: 042
     Dates: start: 20050701

REACTIONS (5)
  - INJURY [None]
  - PAIN [None]
  - RENAL FAILURE [None]
  - RENAL FAILURE ACUTE [None]
  - UNEVALUABLE EVENT [None]
